FAERS Safety Report 23727069 (Version 7)
Quarter: 2024Q3

REPORT INFORMATION
  Report Type: Spontaneous
  Country: US (occurrence: US)
  Receive Date: 20240410
  Receipt Date: 20240801
  Transmission Date: 20241016
  Serious: Yes (Hospitalization, Other)
  Sender: SANOFI AVENTIS
  Company Number: US-SA-SAC20240125000775

PATIENT
  Age: 58 Year
  Sex: Male

DRUGS (5)
  1. FABRAZYME [Suspect]
     Active Substance: AGALSIDASE BETA
     Indication: Fabry^s disease
     Dosage: 90 MG, QOW (IN 250 ML NORMAL SALINE (TOTAL VOLUME) OVER APPROXIMATELY 2 HOURS VIA INFUSION PUMP)
     Route: 042
     Dates: start: 202210, end: 20240314
  2. SODIUM CHLORIDE [Concomitant]
     Active Substance: SODIUM CHLORIDE
     Dosage: UNK
  3. MYCOPHENOLIC ACID [Concomitant]
     Active Substance: MYCOPHENOLIC ACID
     Dosage: UNK
  4. HEPARIN [Concomitant]
     Active Substance: HEPARIN SODIUM
     Dosage: UNK
  5. TACROLIMUS [Concomitant]
     Active Substance: TACROLIMUS
     Dosage: UNK

REACTIONS (5)
  - Cerebrovascular accident [Unknown]
  - Hospitalisation [Recovered/Resolved]
  - Influenza [Unknown]
  - COVID-19 [Unknown]
  - Dialysis [Unknown]

NARRATIVE: CASE EVENT DATE: 20231214
